FAERS Safety Report 8244518-2 (Version None)
Quarter: 2012Q1

REPORT INFORMATION
  Report Type: 
  Country: None (occurrence: None)
  Receive Date: 20120329
  Receipt Date: 20120329
  Transmission Date: 20120608
  Serious: No
  Sender: FDA-Public Use
  Company Number: US-BAYER-2012-030661

PATIENT
  Sex: Female
  Weight: 63.492 kg

DRUGS (4)
  1. BETASERON [Suspect]
     Dosage: WEEKS 7+: 1 ML, QOD
     Route: 058
  2. BETASERON [Suspect]
     Dosage: WEEKS 3-4: 0.5 ML, QOD
     Route: 058
  3. BETASERON [Suspect]
     Indication: MULTIPLE SCLEROSIS
     Dosage: WEEKS 1-2: 0.25 ML, QOD
     Route: 058
  4. BETASERON [Suspect]
     Dosage: WEEKS 5-6: 0.75 ML, QOD
     Route: 058

REACTIONS (3)
  - INFLUENZA LIKE ILLNESS [None]
  - FEELING HOT [None]
  - CHEST DISCOMFORT [None]
